FAERS Safety Report 18042691 (Version 2)
Quarter: 2020Q3

REPORT INFORMATION
  Report Type: Spontaneous
  Country: US (occurrence: US)
  Receive Date: 20200720
  Receipt Date: 20200805
  Transmission Date: 20201103
  Serious: No
  Sender: FDA-Public Use
  Company Number: US-BIOGEN-2018BI00621653

PATIENT
  Age: 55 Year
  Sex: Female

DRUGS (6)
  1. TECFIDERA [Suspect]
     Active Substance: DIMETHYL FUMARATE
     Route: 050
     Dates: start: 20160427
  2. SPIRONOLACT [Concomitant]
     Active Substance: SPIRONOLACTONE
     Route: 065
  3. TECFIDERA [Suspect]
     Active Substance: DIMETHYL FUMARATE
     Indication: MULTIPLE SCLEROSIS
     Dosage: MAINTENANCE DOSE
     Route: 050
     Dates: start: 20180719
  4. VITAMIN D [Concomitant]
     Active Substance: VITAMIN D NOS
     Route: 065
  5. ATORVASTATIN [Concomitant]
     Active Substance: ATORVASTATIN
     Route: 065
  6. OLMESA MEDOX [Concomitant]
     Route: 065

REACTIONS (5)
  - Pain [Unknown]
  - Irritability [Recovered/Resolved]
  - Mobility decreased [Not Recovered/Not Resolved]
  - Flushing [Recovered/Resolved]
  - Gait disturbance [Recovered/Resolved]

NARRATIVE: CASE EVENT DATE: 202007
